FAERS Safety Report 15317237 (Version 1)
Quarter: 2018Q3

REPORT INFORMATION
  Report Type: Spontaneous
  Country: US (occurrence: US)
  Receive Date: 20180816
  Receipt Date: 20180816
  Transmission Date: 20181010
  Serious: Yes (Hospitalization)
  Sender: FDA-Public Use
  Company Number: None

PATIENT
  Sex: Female

DRUGS (1)
  1. LEUKERAN [Suspect]
     Active Substance: CHLORAMBUCIL
     Indication: LYMPHOCYTIC LEUKAEMIA
     Dosage: ?          OTHER FREQUENCY:D 1+15 OF 28DS;?
     Route: 048
     Dates: start: 20180619, end: 20180815

REACTIONS (1)
  - Hospitalisation [None]
